FAERS Safety Report 6470589-X (Version None)
Quarter: 2009Q4

REPORT INFORMATION
  Report Type: 
  Country: None (occurrence: None)
  Receive Date: 20091203
  Receipt Date: 20090825
  Transmission Date: 20100525
  Serious: No
  Sender: FDA-Public Use
  Company Number: US-ABBOTT-09P-163-0594649-00

PATIENT
  Sex: Female

DRUGS (2)
  1. MERIDIA [Suspect]
     Indication: WEIGHT DECREASED
     Route: 048
     Dates: start: 20090730, end: 20090807
  2. DIOVAN [Concomitant]
     Indication: HYPERTENSION

REACTIONS (3)
  - PRURITUS [None]
  - RASH [None]
  - URTICARIA [None]
